FAERS Safety Report 4953090-1 (Version None)
Quarter: 2006Q1

REPORT INFORMATION
  Report Type: 
  Country: None (occurrence: None)
  Receive Date: 20060324
  Receipt Date: 20060321
  Transmission Date: 20060701
  Serious: Yes (Other)
  Sender: FDA-Public Use
  Company Number: 2006CG00552

PATIENT
  Sex: Female

DRUGS (2)
  1. FASLODEX [Suspect]
     Indication: BREAST CANCER
     Route: 030
     Dates: start: 20060307
  2. TAXOTERE [Concomitant]
     Indication: BREAST CANCER
     Dates: end: 20060201

REACTIONS (1)
  - PULMONARY EMBOLISM [None]
